FAERS Safety Report 7808569-1 (Version None)
Quarter: 2011Q4

REPORT INFORMATION
  Report Type: 
  Country: None (occurrence: None)
  Receive Date: 20111012
  Receipt Date: 20111003
  Transmission Date: 20120403
  Serious: No
  Sender: FDA-Public Use
  Company Number: US-PFIZER INC-2011237320

PATIENT
  Sex: Female

DRUGS (1)
  1. ETHINYL ESTRADIOL AND NORETHINDRONE [Suspect]
     Dosage: ONE TABLET DAILY
     Route: 048
     Dates: start: 20110901

REACTIONS (1)
  - METRORRHAGIA [None]
